FAERS Safety Report 7878311-7 (Version None)
Quarter: 2011Q4

REPORT INFORMATION
  Report Type: 
  Country: None (occurrence: None)
  Receive Date: 20111101
  Receipt Date: 20111020
  Transmission Date: 20120403
  Serious: Yes (Death, Other)
  Sender: FDA-Public Use
  Company Number: US-BRISTOL-MYERS SQUIBB COMPANY-16180606

PATIENT
  Age: 66 Year
  Sex: Male
  Weight: 77 kg

DRUGS (2)
  1. LIPITOR [Concomitant]
  2. COUMADIN [Suspect]
     Indication: ANTICOAGULANT THERAPY

REACTIONS (2)
  - DEATH [None]
  - INTERNATIONAL NORMALISED RATIO DECREASED [None]
